FAERS Safety Report 8002630-7 (Version None)
Quarter: 2011Q4

REPORT INFORMATION
  Report Type: 
  Country: None (occurrence: None)
  Receive Date: 20111220
  Receipt Date: 20111205
  Transmission Date: 20120403
  Serious: Yes (Hospitalization)
  Sender: FDA-Public Use
  Company Number: FK201102877

PATIENT
  Age: 77 Year
  Sex: Male

DRUGS (3)
  1. FLUDARA [Suspect]
     Indication: CHRONIC LYMPHOCYTIC LEUKAEMIA
     Dosage: 40 DAILY FOR THREE DAYS A MONTH
  2. DEXAMETHASONE SODIUM PHOSPHATE [Suspect]
     Indication: CHRONIC LYMPHOCYTIC LEUKAEMIA
     Dosage: 10 MG DAILY FOR THREE DAYS, INTRAVENOUS (NOT OTHERWISE SPECIFIED)
     Route: 042
     Dates: start: 20110627, end: 20110921
  3. RITUXAN [Suspect]
     Indication: CHRONIC LYMPHOCYTIC LEUKAEMIA
     Dosage: 375MG/M2 DAILY, ONCE A MONTH, INTRAVENOUS (NOT OTHERWISE SPECIFIED)
     Route: 042
     Dates: start: 20110627, end: 20110919

REACTIONS (2)
  - SINUSITIS [None]
  - DYSPHAGIA [None]
